FAERS Safety Report 14690328 (Version 1)
Quarter: 2018Q1

REPORT INFORMATION
  Report Type: Spontaneous
  Country: SE (occurrence: SE)
  Receive Date: 20180328
  Receipt Date: 20180328
  Transmission Date: 20180509
  Serious: Yes (Other)
  Sender: FDA-Public Use
  Company Number: SE-TEVA-2018-SE-872474

PATIENT
  Age: 55 Year
  Sex: Male

DRUGS (1)
  1. ALFUZOSIN ACTAVIS [Suspect]
     Active Substance: ALFUZOSIN
     Indication: BENIGN PROSTATIC HYPERPLASIA
     Route: 048
     Dates: start: 20171219

REACTIONS (2)
  - Rash pruritic [Unknown]
  - Swelling [Unknown]

NARRATIVE: CASE EVENT DATE: 20171219
